FAERS Safety Report 24823230 (Version 2)
Quarter: 2025Q1

REPORT INFORMATION
  Report Type: Spontaneous
  Country: JP (occurrence: JP)
  Receive Date: 20250109
  Receipt Date: 20250130
  Transmission Date: 20250408
  Serious: Yes (Death, Other)
  Sender: AMGEN
  Company Number: JP-AMGEN-JPNSP2024257354

PATIENT

DRUGS (1)
  1. TAVNEOS [Suspect]
     Active Substance: AVACOPAN
     Indication: Product used for unknown indication
     Route: 048
     Dates: start: 202409, end: 202412

REACTIONS (2)
  - Infection [Fatal]
  - Liver disorder [Unknown]

NARRATIVE: CASE EVENT DATE: 20240101
